FAERS Safety Report 9303990 (Version 3)
Quarter: 2014Q4

REPORT INFORMATION
  Report Type: Spontaneous
  Country: DK (occurrence: DK)
  Receive Date: 20130522
  Receipt Date: 20141017
  Transmission Date: 20150529
  Serious: Yes (Hospitalization)
  Sender: FDA-Public Use
  Company Number: PHHY2013DK049337

PATIENT
  Age: 43 Year
  Sex: Male
  Weight: 94 kg

DRUGS (5)
  1. CLOZAPIN HEXAL [Suspect]
     Active Substance: CLOZAPINE
     Indication: SCHIZOPHRENIA
     Dosage: 650 MG, UNK
     Route: 048
     Dates: start: 2000
  2. LYRICA [Interacting]
     Active Substance: PREGABALIN
     Indication: GENERALISED ANXIETY DISORDER
     Dosage: 150 MG, BID
     Route: 048
     Dates: start: 20121201, end: 20130505
  3. ANTABUSE [Concomitant]
     Active Substance: DISULFIRAM
     Indication: ALCOHOL ABUSE
     Dosage: 800 MG, QW2
     Route: 048
  4. DELEPSINE RETARD [Concomitant]
     Active Substance: DIVALPROEX SODIUM
     Indication: SEIZURE
     Dosage: 600 MG, UNK
     Route: 048
  5. LITAREX [Concomitant]
     Active Substance: LITHIUM CITRATE
     Indication: MOOD ALTERED

REACTIONS (4)
  - Drug interaction [Unknown]
  - Ankle fracture [Recovered/Resolved]
  - Fall [Recovered/Resolved]
  - Dizziness [Recovered/Resolved]

NARRATIVE: CASE EVENT DATE: 20130415
